FAERS Safety Report 8063990-4 (Version None)
Quarter: 2012Q1

REPORT INFORMATION
  Report Type: 
  Country: None (occurrence: None)
  Receive Date: 20120123
  Receipt Date: 20120114
  Transmission Date: 20120608
  Serious: Yes (Hospitalization)
  Sender: FDA-Public Use
  Company Number: PHHY2012FR003939

PATIENT
  Sex: Male

DRUGS (4)
  1. RITALIN [Suspect]
     Dosage: 220 MG, QD
  2. RITALIN [Suspect]
     Indication: NARCOLEPSY
     Dosage: 40-60 MG DAILY
  3. ATARAX [Concomitant]
  4. ZOLPIDEM [Concomitant]

REACTIONS (1)
  - OVERDOSE [None]
